FAERS Safety Report 6608031-8 (Version None)
Quarter: 2010Q1

REPORT INFORMATION
  Report Type: 
  Country: None (occurrence: None)
  Receive Date: 20100301
  Receipt Date: 20100222
  Transmission Date: 20100710
  Serious: Yes (Death)
  Sender: FDA-Public Use
  Company Number: CHPA2010US03746

PATIENT
  Age: 43 Year
  Sex: Female

DRUGS (5)
  1. ACETYLSALICYLIC ACID SRT [Suspect]
     Route: 048
  2. ^BETA BLOCKER^ [Suspect]
  3. QUETIAPINE [Suspect]
  4. TRAZODONE HCL [Suspect]
  5. IBUPROFEN [Suspect]

REACTIONS (1)
  - DEATH [None]
